FAERS Safety Report 4294400-0 (Version None)
Quarter: 2004Q1

REPORT INFORMATION
  Report Type: 
  Country: None (occurrence: None)
  Receive Date: 20040211
  Receipt Date: 20040204
  Transmission Date: 20041129
  Serious: Yes (Life-Threatening)
  Sender: FDA-Public Use
  Company Number: 2004197482JP

PATIENT
  Age: 66 Year
  Sex: Male

DRUGS (2)
  1. CABERGOLINE [Suspect]
     Indication: PARKINSON'S DISEASE
     Dosage: 1 MG DAILY, ORAL
     Route: 048
     Dates: start: 20040113, end: 20040101
  2. MADOPAR (BESERAZIDE HYDROCHLORIDE) [Concomitant]

REACTIONS (3)
  - ASPIRATION [None]
  - HICCUPS [None]
  - INTERSTITIAL LUNG DISEASE [None]
